FAERS Safety Report 7009591-8 (Version None)
Quarter: 2010Q3

REPORT INFORMATION
  Report Type: 
  Country: None (occurrence: None)
  Receive Date: 20100903
  Receipt Date: 20100218
  Transmission Date: 20110219
  Serious: Yes (Other)
  Sender: FDA-Public Use
  Company Number: 2010022287

PATIENT
  Age: 63 Year
  Sex: Male
  Weight: 68 kg

DRUGS (11)
  1. DETROL LA [Suspect]
     Indication: HYPERTONIC BLADDER
     Dosage: 2 MG 1X/DAY ORAL
     Route: 048
     Dates: start: 20091001, end: 20100101
  2. FOSAMAX [Concomitant]
  3. ADVAIR DISKUS 100/50 [Concomitant]
  4. RALTEGRAVIR (RALTEGRAVIR) [Concomitant]
  5. TRUVADA [Concomitant]
  6. PRAVASTATIN [Concomitant]
  7. CHLORTHALIDONE [Concomitant]
  8. VITAMIN E [Concomitant]
  9. VITAMIN D [Concomitant]
  10. CALCIUM (CALCIUM) [Concomitant]
  11. ANDROGEL [Concomitant]

REACTIONS (2)
  - DRUG INEFFECTIVE [None]
  - URINARY INCONTINENCE [None]
